FAERS Safety Report 13019649 (Version 1)
Quarter: 2016Q4

REPORT INFORMATION
  Report Type: Spontaneous
  Country: US (occurrence: US)
  Receive Date: 20161212
  Receipt Date: 20161212
  Transmission Date: 20170207
  Serious: No
  Sender: FDA-Public Use
  Company Number: US-ROCHE-1777674

PATIENT
  Sex: Male

DRUGS (1)
  1. ACTEMRA [Suspect]
     Active Substance: TOCILIZUMAB
     Indication: RHEUMATOID ARTHRITIS
     Dosage: WEEKLY
     Route: 058

REACTIONS (3)
  - Disorientation [Not Recovered/Not Resolved]
  - Blister [Not Recovered/Not Resolved]
  - Feeling abnormal [Not Recovered/Not Resolved]
